FAERS Safety Report 6285046-3 (Version None)
Quarter: 2009Q3

REPORT INFORMATION
  Report Type: 
  Country: None (occurrence: None)
  Receive Date: 20090727
  Receipt Date: 20090710
  Transmission Date: 20100115
  Serious: No
  Sender: FDA-Public Use
  Company Number: US-TYCO HEALTHCARE/MALLINCKRODT-T200901350

PATIENT
  Sex: Male

DRUGS (2)
  1. OXYCODONE HCL EXTENDED-RELEASE [Suspect]
     Indication: PAIN
     Dosage: ONE Q 12
     Dates: start: 20090701
  2. SOMA [Concomitant]
     Indication: MUSCLE RELAXANT THERAPY

REACTIONS (3)
  - FEELING HOT [None]
  - HEADACHE [None]
  - HYPERHIDROSIS [None]
